FAERS Safety Report 4927878-7 (Version None)
Quarter: 2006Q1

REPORT INFORMATION
  Report Type: 
  Country: None (occurrence: None)
  Receive Date: 20060228
  Receipt Date: 20051205
  Transmission Date: 20060701
  Serious: Yes (Disabling)
  Sender: FDA-Public Use
  Company Number: FR-GLAXOSMITHKLINE-B0402970A

PATIENT
  Age: 30 Year
  Sex: Male
  Weight: 89.5 kg

DRUGS (1)
  1. EPIVIR [Suspect]
     Indication: HIV INFECTION
     Dosage: 1TAB PER DAY
     Route: 048
     Dates: start: 20040827, end: 20051107

REACTIONS (5)
  - ASTHENIA [None]
  - MITOCHONDRIAL CYTOPATHY [None]
  - MUSCLE FATIGUE [None]
  - MUSCLE SPASMS [None]
  - NEURALGIA [None]
